FAERS Safety Report 21693445 (Version 1)
Quarter: 2022Q4

REPORT INFORMATION
  Report Type: Spontaneous
  Country: JP (occurrence: JP)
  Receive Date: 20221207
  Receipt Date: 20221207
  Transmission Date: 20230113
  Serious: Yes (Hospitalization, Other)
  Sender: FDA-Public Use
  Company Number: JP-GILEAD-2022-0601050

PATIENT
  Age: 89 Year
  Sex: Female

DRUGS (8)
  1. HARVONI [Suspect]
     Active Substance: LEDIPASVIR\SOFOSBUVIR
     Indication: Chronic hepatitis C
     Dosage: UNK
     Route: 048
     Dates: start: 20220908, end: 20221007
  2. HARVONI [Suspect]
     Active Substance: LEDIPASVIR\SOFOSBUVIR
     Dosage: UNK
     Route: 048
     Dates: start: 20221012
  3. ASPIRIN [Concomitant]
     Active Substance: ASPIRIN
  4. CLOPIDOGREL BISULFATE [Concomitant]
     Active Substance: CLOPIDOGREL BISULFATE
  5. NOVASTAN [ARGATROBAN] [Concomitant]
  6. EDARAVONE [Concomitant]
     Active Substance: EDARAVONE
  7. BROTIZOLAM [Concomitant]
     Active Substance: BROTIZOLAM
  8. TERIPARATIDE ACETATE [Concomitant]
     Active Substance: TERIPARATIDE ACETATE

REACTIONS (4)
  - Thrombotic cerebral infarction [Recovered/Resolved]
  - Arterial thrombosis [Recovered/Resolved]
  - Osteoporosis [Unknown]
  - Insomnia [Unknown]

NARRATIVE: CASE EVENT DATE: 20221006
